FAERS Safety Report 7524625-X (Version None)
Quarter: 2011Q2

REPORT INFORMATION
  Report Type: 
  Country: None (occurrence: None)
  Receive Date: 20110606
  Receipt Date: 20110526
  Transmission Date: 20111010
  Serious: Yes (Other)
  Sender: FDA-Public Use
  Company Number: US-JNJFOC-20110512296

PATIENT
  Sex: Female
  Weight: 58.97 kg

DRUGS (5)
  1. DURAGESIC-100 [Suspect]
     Indication: PAIN
     Route: 062
     Dates: start: 20010101, end: 20110101
  2. UNKNOWN MEDICATION [Suspect]
     Indication: PAIN
     Route: 065
     Dates: start: 20110101, end: 20110101
  3. BENZODIAZEPINES NOS [Concomitant]
     Indication: ANXIETY
     Route: 048
  4. LORTAB [Concomitant]
     Indication: BREAKTHROUGH PAIN
     Route: 048
     Dates: start: 20010101
  5. DURAGESIC-100 [Suspect]
     Route: 062
     Dates: start: 20110101

REACTIONS (6)
  - DRUG ADMINISTERED AT INAPPROPRIATE SITE [None]
  - TOXICITY TO VARIOUS AGENTS [None]
  - MEDICATION ERROR [None]
  - PRODUCT ADHESION ISSUE [None]
  - WRONG TECHNIQUE IN DRUG USAGE PROCESS [None]
  - APPLICATION SITE PRURITUS [None]
